FAERS Safety Report 15364627 (Version 1)
Quarter: 2018Q3

REPORT INFORMATION
  Report Type: Spontaneous
  Country: US (occurrence: US)
  Receive Date: 20180910
  Receipt Date: 20180910
  Transmission Date: 20181010
  Serious: No
  Sender: FDA-Public Use
  Company Number: US-JNJFOC-20180816799

PATIENT
  Sex: Female
  Weight: 49.9 kg

DRUGS (1)
  1. TYLENOL EXTRA STRENGTH [Suspect]
     Active Substance: ACETAMINOPHEN
     Indication: PROCEDURAL PAIN
     Dosage: 1?2 TABLETS EVERY OTHER DAY
     Route: 048
     Dates: start: 20180723, end: 20180813

REACTIONS (1)
  - Product use in unapproved indication [Unknown]
